FAERS Safety Report 19217504 (Version 1)
Quarter: 2021Q2

REPORT INFORMATION
  Report Type: Spontaneous
  Country: US (occurrence: US)
  Receive Date: 20210505
  Receipt Date: 20210505
  Transmission Date: 20210717
  Serious: No
  Sender: FDA-Public Use
  Company Number: None

PATIENT
  Age: 58 Year
  Sex: Female
  Weight: 76.05 kg

DRUGS (22)
  1. SIMVASTATIN. [Concomitant]
     Active Substance: SIMVASTATIN
  2. MECLIZINE HCL [Concomitant]
     Active Substance: MECLIZINE HYDROCHLORIDE
  3. FISH OIL BURP?LESS [Concomitant]
     Active Substance: FISH OIL
  4. LORATADINE CHILDRENS [Concomitant]
  5. MIRALAX [Concomitant]
     Active Substance: POLYETHYLENE GLYCOL 3350
  6. ANASTROZOLE. [Concomitant]
     Active Substance: ANASTROZOLE
  7. PSEUDOEPHEDRINE HCL [Concomitant]
     Active Substance: PSEUDOEPHEDRINE HYDROCHLORIDE
  8. LISINOPRIL. [Concomitant]
     Active Substance: LISINOPRIL
  9. AFINITOR [Concomitant]
     Active Substance: EVEROLIMUS
  10. EXEMESTANE. [Concomitant]
     Active Substance: EXEMESTANE
  11. THERATEARS [Concomitant]
     Active Substance: CARBOXYMETHYLCELLULOSE SODIUM
  12. CENTRUM [Concomitant]
     Active Substance: VITAMINS
  13. LETROZOLE. [Concomitant]
     Active Substance: LETROZOLE
  14. DEXAMETHASONE. [Concomitant]
     Active Substance: DEXAMETHASONE
  15. METOPROLOL SUCCINATE ER [Concomitant]
     Active Substance: METOPROLOL SUCCINATE
  16. DIPROLENE AF [Concomitant]
     Active Substance: BETAMETHASONE DIPROPIONATE
  17. FASLODEX [Concomitant]
     Active Substance: FULVESTRANT
  18. CAPECITABINE. [Suspect]
     Active Substance: CAPECITABINE
     Indication: BREAST CANCER
     Route: 048
     Dates: start: 20200914, end: 20210505
  19. ASPIRIN ADULT LOW DOSE [Concomitant]
     Active Substance: ASPIRIN
  20. ZOMETA [Concomitant]
     Active Substance: ZOLEDRONIC ACID
  21. DIPHENHYDRAMINE HCL [Concomitant]
     Active Substance: DIPHENHYDRAMINE HYDROCHLORIDE
  22. TAMOXIFEN CITRATE. [Concomitant]
     Active Substance: TAMOXIFEN CITRATE

REACTIONS (1)
  - Disease progression [None]
